FAERS Safety Report 21009269 (Version 1)
Quarter: 2022Q2

REPORT INFORMATION
  Report Type: Spontaneous
  Country: US (occurrence: None)
  Receive Date: 20220624
  Receipt Date: 20220624
  Transmission Date: 20220721
  Serious: Yes (Other)
  Sender: FDA-Public Use
  Company Number: None

PATIENT
  Age: 18 Year
  Sex: Female
  Weight: 51.75 kg

DRUGS (5)
  1. KETAMINE [Suspect]
     Active Substance: KETAMINE
     Indication: Anaesthesia
  2. KETAMINE [Suspect]
     Active Substance: KETAMINE
     Indication: Dental operation
  3. UNSPECIFIED INGREDIENT [Concomitant]
     Active Substance: UNSPECIFIED INGREDIENT
  4. SYMBICORT [Concomitant]
     Active Substance: BUDESONIDE\FORMOTEROL FUMARATE DIHYDRATE
  5. ZYRTEC [Concomitant]
     Active Substance: CETIRIZINE HYDROCHLORIDE

REACTIONS (14)
  - Gait inability [None]
  - Diplopia [None]
  - Drooling [None]
  - Lacrimation increased [None]
  - Muscular weakness [None]
  - Myalgia [None]
  - Muscle rigidity [None]
  - Psychomotor hyperactivity [None]
  - Headache [None]
  - Nausea [None]
  - Haematemesis [None]
  - Blood pressure decreased [None]
  - Dehydration [None]
  - Drug hypersensitivity [None]

NARRATIVE: CASE EVENT DATE: 20220620
